FAERS Safety Report 10914130 (Version 4)
Quarter: 2017Q1

REPORT INFORMATION
  Report Type: Spontaneous
  Country: US (occurrence: US)
  Receive Date: 20150313
  Receipt Date: 20170110
  Transmission Date: 20170428
  Serious: Yes (Other)
  Sender: FDA-Public Use
  Company Number: US-009507513-1503USA005293

PATIENT
  Age: 72 Year
  Sex: Female

DRUGS (6)
  1. BENAZEPRIL HYDROCHLORIDE. [Concomitant]
     Active Substance: BENAZEPRIL HYDROCHLORIDE
  2. METOPROLOL. [Concomitant]
     Active Substance: METOPROLOL
  3. FOSAMAX [Suspect]
     Active Substance: ALENDRONATE SODIUM
     Indication: OSTEOPOROSIS
     Dosage: UNK
     Route: 048
  4. CALCIUM (UNSPECIFIED) [Concomitant]
     Active Substance: CALCIUM
     Dosage: 600 MG, BID
  5. ASPIRIN. [Concomitant]
     Active Substance: ASPIRIN
  6. ATORVASTATIN [Concomitant]
     Active Substance: ATORVASTATIN

REACTIONS (1)
  - Atypical femur fracture [Unknown]

NARRATIVE: CASE EVENT DATE: 201403
